FAERS Safety Report 26126995 (Version 1)
Quarter: 2025Q4

REPORT INFORMATION
  Report Type: Spontaneous
  Country: US (occurrence: None)
  Receive Date: 20251205
  Receipt Date: 20251205
  Transmission Date: 20260117
  Serious: Yes (Hospitalization)
  Sender: FDA-CTU
  Company Number: None

PATIENT
  Sex: Male
  Weight: 99 kg

DRUGS (2)
  1. WINREVAIR [Suspect]
     Active Substance: SOTATERCEPT-CSRK
     Indication: Pulmonary arterial hypertension
     Dosage: 1.4 ML EVERY 3 WEEKS SUBCUTANEOUS
     Route: 058
     Dates: start: 20240701
  2. YUTREPIA [Suspect]
     Active Substance: TREPROSTINIL SODIUM

REACTIONS (4)
  - Dehydration [None]
  - Pyrexia [None]
  - Pain [None]
  - Product dose omission in error [None]
